FAERS Safety Report 8321513-6 (Version None)
Quarter: 2012Q2

REPORT INFORMATION
  Report Type: 
  Country: None (occurrence: None)
  Receive Date: 20120430
  Receipt Date: 20120430
  Transmission Date: 20120825
  Serious: No
  Sender: FDA-Public Use
  Company Number: None

PATIENT
  Age: 21 Year
  Sex: Female
  Weight: 72.574 kg

DRUGS (2)
  1. LO LOESTRIN FE [Concomitant]
  2. LO LOESTRIN FE [Suspect]

REACTIONS (9)
  - HEADACHE [None]
  - ANGER [None]
  - DIZZINESS [None]
  - NAUSEA [None]
  - MOOD SWINGS [None]
  - MENORRHAGIA [None]
  - FEELING OF BODY TEMPERATURE CHANGE [None]
  - DEPRESSED MOOD [None]
  - MUSCLE SPASMS [None]
